FAERS Safety Report 16119902 (Version 3)
Quarter: 2021Q1

REPORT INFORMATION
  Report Type: Spontaneous
  Country: US (occurrence: US)
  Receive Date: 20190326
  Receipt Date: 20210217
  Transmission Date: 20210419
  Serious: Yes (Death, Hospitalization, Other)
  Sender: FDA-Public Use
  Company Number: US-ASTRAZENECA-2019SE43432

PATIENT
  Age: 21539 Day
  Sex: Female

DRUGS (39)
  1. BYETTA [Suspect]
     Active Substance: EXENATIDE
     Dosage: TWO TIMES DAILY
     Route: 065
     Dates: start: 20130718
  2. AZELASTINE. [Concomitant]
     Active Substance: AZELASTINE HYDROCHLORIDE
     Dates: start: 20170509
  3. CLOTRIMAZOLE. [Concomitant]
     Active Substance: CLOTRIMAZOLE
     Dates: start: 20110325
  4. SINGULAIR [Concomitant]
     Active Substance: MONTELUKAST SODIUM
     Dates: start: 20120216
  5. HYDROCHLOROTHIAZIDE. [Concomitant]
     Active Substance: HYDROCHLOROTHIAZIDE
     Dates: start: 20111114
  6. BYETTA [Suspect]
     Active Substance: EXENATIDE
     Dosage: TWO TIMES DAILY
     Route: 065
     Dates: start: 20121028
  7. LANTUS [Concomitant]
     Active Substance: INSULIN GLARGINE
  8. AZITHROMYCIN ANHYDROUS. [Concomitant]
     Active Substance: AZITHROMYCIN ANHYDROUS
     Dates: start: 20141001
  9. NAPROXEN. [Concomitant]
     Active Substance: NAPROXEN
     Dates: start: 20151022
  10. BYETTA [Suspect]
     Active Substance: EXENATIDE
     Route: 065
     Dates: start: 20110114, end: 20140305
  11. BYETTA [Suspect]
     Active Substance: EXENATIDE
     Route: 065
     Dates: start: 20111114, end: 20120601
  12. BYETTA [Suspect]
     Active Substance: EXENATIDE
     Dosage: TWO TIMES DAILY
     Route: 065
     Dates: start: 20130722
  13. BYETTA [Suspect]
     Active Substance: EXENATIDE
     Dosage: TWO TIMES DAILY
     Route: 065
     Dates: start: 20131212
  14. JARDIANCE [Concomitant]
     Active Substance: EMPAGLIFLOZIN
  15. OMEPRAZOLE. [Concomitant]
     Active Substance: OMEPRAZOLE
     Dates: start: 20150509
  16. LEVOCETIRIZINE [Concomitant]
     Active Substance: LEVOCETIRIZINE
     Dates: start: 20150525
  17. PREDNISONE. [Concomitant]
     Active Substance: PREDNISONE
     Dates: start: 20150515
  18. ALBUTEROL. [Concomitant]
     Active Substance: ALBUTEROL
     Dates: start: 20110325
  19. LATANOPROST. [Concomitant]
     Active Substance: LATANOPROST
  20. METFORMIN [Concomitant]
     Active Substance: METFORMIN HYDROCHLORIDE
     Dates: start: 20120216
  21. BYETTA [Suspect]
     Active Substance: EXENATIDE
     Dosage: TWO TIMES DAILY
     Route: 065
     Dates: start: 20120210
  22. BYETTA [Suspect]
     Active Substance: EXENATIDE
     Dosage: TWO TIMES DAILY
     Route: 065
     Dates: start: 20120304
  23. BYETTA [Suspect]
     Active Substance: EXENATIDE
     Dosage: TWO TIMES DAILY
     Route: 065
     Dates: start: 20120308
  24. BYETTA [Suspect]
     Active Substance: EXENATIDE
     Dosage: TWO TIMES DAILY
     Route: 065
     Dates: start: 20140305
  25. LEVEMIR [Concomitant]
     Active Substance: INSULIN DETEMIR
  26. MONTELUKAST [Concomitant]
     Active Substance: MONTELUKAST SODIUM
  27. FUROSEMIDE. [Concomitant]
     Active Substance: FUROSEMIDE
     Dates: start: 20150525
  28. PROMETHAZINE [Concomitant]
     Active Substance: PROMETHAZINE HYDROCHLORIDE
     Dates: start: 20160225
  29. VICTOZA [Suspect]
     Active Substance: LIRAGLUTIDE
     Dosage: 1.2 MG TO 1.8 MG ONCE A DAILY
     Route: 065
     Dates: start: 20120806, end: 201806
  30. CORICIDIN [Concomitant]
     Dates: start: 20150302
  31. FLUCONAZOLE. [Concomitant]
     Active Substance: FLUCONAZOLE
     Dates: start: 20150604
  32. VENTOLIN [Concomitant]
     Active Substance: ALBUTEROL SULFATE
  33. ZALEPLON. [Concomitant]
     Active Substance: ZALEPLON
     Dates: start: 20150914
  34. NAPROXEN. [Concomitant]
     Active Substance: NAPROXEN
     Dates: start: 20161007
  35. LISINOPRIL. [Concomitant]
     Active Substance: LISINOPRIL
     Dates: start: 20150604
  36. DOXEPIN [Concomitant]
     Active Substance: DOXEPIN
     Dates: start: 20150604
  37. TERBINAFINE. [Concomitant]
     Active Substance: TERBINAFINE
     Dates: start: 20150827
  38. FLUTICASONE. [Concomitant]
     Active Substance: FLUTICASONE
     Dates: start: 20161007
  39. PATANOL [Concomitant]
     Active Substance: OLOPATADINE HYDROCHLORIDE
     Dates: start: 20110206

REACTIONS (3)
  - Pancreatic carcinoma metastatic [Unknown]
  - Death [Fatal]
  - Pancreatic carcinoma [Unknown]

NARRATIVE: CASE EVENT DATE: 20180124
